FAERS Safety Report 10643743 (Version 3)
Quarter: 2015Q3

REPORT INFORMATION
  Report Type: Spontaneous
  Country: PT (occurrence: PT)
  Receive Date: 20141210
  Receipt Date: 20150928
  Transmission Date: 20151125
  Serious: No
  Sender: FDA-Public Use
  Company Number: PT-ACTELION-A-CH2014-109111

PATIENT
  Age: 31 Year
  Sex: Female

DRUGS (5)
  1. TRACLEER [Suspect]
     Active Substance: BOSENTAN
     Indication: SCLERODERMA ASSOCIATED DIGITAL ULCER
     Dosage: 125 MG, BID
     Route: 048
     Dates: start: 20090928, end: 20141202
  2. CYCLOPHOSPHAMIDE. [Concomitant]
     Active Substance: CYCLOPHOSPHAMIDE
  3. NIFEDIPINA [Concomitant]
     Active Substance: NIFEDIPINE
  4. PREDNISOLONA [Concomitant]
     Active Substance: PREDNISOLONE
  5. LEVOTIROXINA [Concomitant]
     Active Substance: LEVOTHYROXINE SODIUM

REACTIONS (3)
  - Live birth [Unknown]
  - Pregnancy [Recovered/Resolved]
  - Premature delivery [Recovered/Resolved]
